FAERS Safety Report 25625448 (Version 1)
Quarter: 2025Q3

REPORT INFORMATION
  Report Type: Spontaneous
  Country: US (occurrence: US)
  Receive Date: 20250731
  Receipt Date: 20250731
  Transmission Date: 20251021
  Serious: No
  Sender: LYNE LABORATORIES
  Company Number: US-Lyne Laboratories Inc.-2181570

PATIENT
  Sex: Female

DRUGS (1)
  1. TRIAMCINOLONE ACETONIDE [Suspect]
     Active Substance: TRIAMCINOLONE ACETONIDE
     Indication: Product used for unknown indication

REACTIONS (10)
  - Lip exfoliation [Unknown]
  - Product physical issue [Unknown]
  - Off label use [Unknown]
  - Incorrect route of product administration [Unknown]
  - Contraindicated product administered [Unknown]
  - Fall [Unknown]
  - Eating disorder [Unknown]
  - Lip swelling [Unknown]
  - Dysphagia [Unknown]
  - Lip haemorrhage [Unknown]
